FAERS Safety Report 8322051-7 (Version None)
Quarter: 2012Q2

REPORT INFORMATION
  Report Type: 
  Country: None (occurrence: None)
  Receive Date: 20120426
  Receipt Date: 20120419
  Transmission Date: 20120825
  Serious: Yes (Hospitalization)
  Sender: FDA-Public Use
  Company Number: TPA2011A08043

PATIENT
  Age: 80 Year
  Sex: Male

DRUGS (12)
  1. NEBIVOLOL HCL [Concomitant]
  2. PANTOPRAZOL (PANTOPRAZOLE SODIUM) [Concomitant]
  3. ADENURIC (FEBUXOSTAT) [Suspect]
     Indication: HYPERURICAEMIA
     Dosage: 80 MG (80 MG,1 IN 1 D) 1) ORAL
     Route: 048
     Dates: start: 20110811, end: 20110909
  4. AZATHIOPRINE [Suspect]
     Indication: AUTOIMMUNE DISORDER
     Dosage: 200 MG (1 IN 1 D) 1) ORAL
     Route: 048
     Dates: start: 20110811, end: 20110909
  5. LIMPTAR N (QUININE SULFATE) [Concomitant]
  6. BLOPRESS (CANDESARTAN CILEXETIL) [Concomitant]
  7. TILIDIN COMP (NALOXONE HYDROCHLORIDE, TILIDINE HYDROCHLORIDE) [Concomitant]
  8. DEKRISTOL 20 000 (COLECALCIFEROL) [Concomitant]
  9. TAMSULOSIN (TAMSULOSIN HYDROCHLORIDE) [Concomitant]
  10. ASPIRIN [Concomitant]
  11. TORSEMIDE [Concomitant]
  12. BONVIVA (IBANDRONATE SODIUM) [Concomitant]

REACTIONS (7)
  - NEPHROGENIC ANAEMIA [None]
  - DRUG INTERACTION [None]
  - PULMONARY EMBOLISM [None]
  - ANTIPHOSPHOLIPID ANTIBODIES [None]
  - DEEP VEIN THROMBOSIS [None]
  - ANAEMIA [None]
  - TOXICITY TO VARIOUS AGENTS [None]
